FAERS Safety Report 6595411-2 (Version None)
Quarter: 2010Q1

REPORT INFORMATION
  Report Type: 
  Country: None (occurrence: None)
  Receive Date: 20100223
  Receipt Date: 20100211
  Transmission Date: 20100710
  Serious: Yes (Other)
  Sender: FDA-Public Use
  Company Number: US-RANBAXY-2010US-31139

PATIENT

DRUGS (4)
  1. ISOTRETINOIN [Suspect]
     Indication: ACNE
     Dosage: 10 MG, UNK
     Route: 048
  2. ISOTRETINOIN [Suspect]
     Dosage: 30 MG, UNK
     Route: 065
  3. ISOTRETINOIN [Suspect]
     Dosage: 40 MG, UNK
     Route: 065
  4. ACCUTANE [Suspect]
     Indication: ACNE
     Dosage: 40.000000 MG, UNK
     Route: 065

REACTIONS (1)
  - GASTROINTESTINAL SURGERY [None]
